FAERS Safety Report 11193119 (Version 3)
Quarter: 2016Q1

REPORT INFORMATION
  Report Type: Spontaneous
  Country: ES (occurrence: ES)
  Receive Date: 20150616
  Receipt Date: 20160318
  Transmission Date: 20160525
  Serious: Yes (Death)
  Sender: FDA-Public Use
  Company Number: ES-JNJFOC-20150608548

PATIENT
  Age: 75 Year
  Sex: Male

DRUGS (6)
  1. ACENOCUMAROL [Concomitant]
     Active Substance: ACENOCOUMAROL
  2. SOFOSBUVIR [Suspect]
     Active Substance: SOFOSBUVIR
     Indication: HEPATITIS C
     Route: 065
     Dates: start: 201501
  3. FUROSEMIDE. [Concomitant]
     Active Substance: FUROSEMIDE
  4. BISOPROLOL [Concomitant]
     Active Substance: BISOPROLOL
  5. SIMEPREVIR [Suspect]
     Active Substance: SIMEPREVIR
     Indication: HEPATITIS C
     Route: 065
     Dates: start: 201501
  6. SPIRONOLACTONE. [Concomitant]
     Active Substance: SPIRONOLACTONE

REACTIONS (4)
  - Drug-induced liver injury [Fatal]
  - Product use issue [Unknown]
  - Hepatic failure [Fatal]
  - Off label use [Unknown]
